FAERS Safety Report 6684301-2 (Version None)
Quarter: 2010Q2

REPORT INFORMATION
  Report Type: 
  Country: None (occurrence: None)
  Receive Date: 20100416
  Receipt Date: 20100406
  Transmission Date: 20101027
  Serious: No
  Sender: FDA-Public Use
  Company Number: PHHY2010BR05610

PATIENT
  Age: 57 Year
  Sex: Female

DRUGS (1)
  1. ELIDEL [Suspect]
     Indication: VITILIGO
     Dosage: ONE APPLICATION PER DAY
     Route: 061
     Dates: start: 20091224

REACTIONS (1)
  - DIARRHOEA [None]
